FAERS Safety Report 9748809 (Version 2)
Quarter: 2013Q4

REPORT INFORMATION
  Report Type: Spontaneous
  Country: US (occurrence: US)
  Receive Date: 20131212
  Receipt Date: 20131212
  Transmission Date: 20140711
  Serious: Yes (Hospitalization)
  Sender: FDA-Public Use
  Company Number: US-INCYTE CORPORATION-2013IN001479

PATIENT
  Sex: Female
  Weight: 72.56 kg

DRUGS (17)
  1. JAKAFI [Suspect]
     Indication: MYELOFIBROSIS
     Dosage: 10 MG, BID
     Route: 048
     Dates: start: 20121108
  2. JAKAFI [Suspect]
     Dosage: 5 MG, BID
     Route: 048
     Dates: start: 20121203
  3. JAKAFI [Suspect]
     Dosage: 10 MG Q AM AND 5 MG Q PM
     Route: 048
     Dates: start: 20130128
  4. JAKAFI [Suspect]
     Dosage: 10 MG BETWEEN ALTERNATING WITH 15 MG DAILY
  5. SYNTHROID [Concomitant]
  6. HYDROCHLOROTHIAZIDE [Concomitant]
  7. AMLODIPINE [Concomitant]
  8. ASPIRINE [Concomitant]
  9. SOTALOL [Concomitant]
  10. SIMVASTATIN [Concomitant]
  11. COUMADIN [Concomitant]
  12. VITAMIN D [Concomitant]
  13. POTASSIUM [Concomitant]
  14. FIBERCON [Concomitant]
  15. TYLENOL [Concomitant]
  16. FLECTOR [Concomitant]
  17. PROCRIT [Concomitant]
     Dosage: WEEKLY

REACTIONS (4)
  - Anaemia [Unknown]
  - Thrombocytopenia [Unknown]
  - Contusion [Not Recovered/Not Resolved]
  - Joint injury [Unknown]
